FAERS Safety Report 21662477 (Version 1)
Quarter: 2022Q4

REPORT INFORMATION
  Report Type: Spontaneous
  Country: GB (occurrence: GB)
  Receive Date: 20221130
  Receipt Date: 20221130
  Transmission Date: 20230113
  Serious: Yes (Hospitalization, Other)
  Sender: FDA-Public Use
  Company Number: GB-TAKEDA-2022TUS087666

PATIENT
  Age: 65 Year
  Sex: Female

DRUGS (3)
  1. IXAZOMIB [Suspect]
     Active Substance: IXAZOMIB
     Indication: Plasma cell myeloma
     Dosage: UNK
     Route: 065
     Dates: start: 202010
  2. DEXAMETHASONE [Suspect]
     Active Substance: DEXAMETHASONE
     Indication: Plasma cell myeloma
     Dosage: UNK
     Route: 065
     Dates: start: 202010
  3. REVLIMID [Suspect]
     Active Substance: LENALIDOMIDE
     Indication: Plasma cell myeloma
     Dosage: UNK
     Route: 065
     Dates: start: 202010

REACTIONS (13)
  - Meningitis [Unknown]
  - Cerebral venous thrombosis [Unknown]
  - Lung consolidation [Unknown]
  - Malaise [Unknown]
  - Plasma cell myeloma [Unknown]
  - Thrombocytopenia [Unknown]
  - Mental disorder [Unknown]
  - Depressed mood [Unknown]
  - Anxiety [Unknown]
  - Ear pain [Unknown]
  - Anaemia [Unknown]
  - Rash [Unknown]
  - Constipation [Unknown]

NARRATIVE: CASE EVENT DATE: 20210701
